FAERS Safety Report 6772776-X (Version None)
Quarter: 2010Q2

REPORT INFORMATION
  Report Type: 
  Country: None (occurrence: None)
  Receive Date: 20100616
  Receipt Date: 20100609
  Transmission Date: 20101027
  Serious: Yes (Hospitalization)
  Sender: FDA-Public Use
  Company Number: JP-BRISTOL-MYERS SQUIBB COMPANY-15110745

PATIENT
  Age: 65 Year
  Sex: Male

DRUGS (2)
  1. ABILIFY [Suspect]
     Indication: SCHIZOPHRENIA
     Dosage: 18MG;17SEP-11NOV08,24MG:12NOV08-07JAN09,12MG:08JAN09-18JAN,24MG:02MAR09-09MAR09
     Route: 048
     Dates: start: 20080917, end: 20090309
  2. RISPERDAL [Concomitant]
     Dates: start: 20080101

REACTIONS (1)
  - HALLUCINATION, AUDITORY [None]
